FAERS Safety Report 11909145 (Version 2)
Quarter: 2016Q1

REPORT INFORMATION
  Report Type: Spontaneous
  Country: CA (occurrence: CA)
  Receive Date: 20160112
  Receipt Date: 20160330
  Transmission Date: 20160526
  Serious: Yes (Hospitalization)
  Sender: FDA-Public Use
  Company Number: CA-ROCHE-1692417

PATIENT
  Sex: Female

DRUGS (11)
  1. XOLAIR [Suspect]
     Active Substance: OMALIZUMAB
     Indication: ASTHMA
     Route: 058
     Dates: start: 20150427
  2. LANSOPRAZOLE. [Concomitant]
     Active Substance: LANSOPRAZOLE
  3. RELAXA (CANADA) [Concomitant]
  4. SEPTRA [Concomitant]
     Active Substance: SULFAMETHOXAZOLE\TRIMETHOPRIM
  5. SALBUTAMOL [Concomitant]
     Active Substance: ALBUTEROL
  6. FORMOTEROL [Concomitant]
     Active Substance: FORMOTEROL
  7. PREVACID [Concomitant]
     Active Substance: LANSOPRAZOLE
  8. ITRACONAZOLE. [Concomitant]
     Active Substance: ITRACONAZOLE
  9. PREDNISONE. [Concomitant]
     Active Substance: PREDNISONE
  10. OXYCODONE [Concomitant]
     Active Substance: OXYCODONE
  11. AQUADEKS [Concomitant]
     Active Substance: MINERALS\VITAMINS

REACTIONS (3)
  - Malaise [Unknown]
  - Cystic fibrosis [Unknown]
  - Asthma [Unknown]
